FAERS Safety Report 16438375 (Version 1)
Quarter: 2019Q2

REPORT INFORMATION
  Report Type: Spontaneous
  Country: US (occurrence: US)
  Receive Date: 20190617
  Receipt Date: 20190617
  Transmission Date: 20190711
  Serious: Yes (Hospitalization, Other)
  Sender: FDA-Public Use
  Company Number: US-STRIDES ARCOLAB LIMITED-2019SP005012

PATIENT
  Age: 50 Year
  Sex: Male

DRUGS (3)
  1. KINKELIBA [Suspect]
     Active Substance: HERBALS
     Indication: PHYTOTHERAPY
     Dosage: UNK
     Route: 065
  2. IBUPROFEN. [Suspect]
     Active Substance: IBUPROFEN
     Indication: VOMITING
     Dosage: UNK
     Route: 065
  3. IBUPROFEN. [Suspect]
     Active Substance: IBUPROFEN
     Indication: NAUSEA

REACTIONS (5)
  - Chromaturia [Unknown]
  - Pigment nephropathy [Unknown]
  - Acute kidney injury [Recovered/Resolved]
  - Off label use [Unknown]
  - Proteinuria [Recovered/Resolved]
